FAERS Safety Report 5855015-3 (Version None)
Quarter: 2008Q3

REPORT INFORMATION
  Report Type: 
  Country: None (occurrence: None)
  Receive Date: 20080822
  Receipt Date: 20080514
  Transmission Date: 20090109
  Serious: No
  Sender: FDA-Public Use
  Company Number: US-ABBOTT-08P-163-0451938-00

PATIENT
  Sex: Female
  Weight: 78.996 kg

DRUGS (6)
  1. SYNTHROID [Suspect]
     Indication: HYPOTHYROIDISM
     Route: 048
     Dates: start: 19940101
  2. METFORMIN [Concomitant]
     Indication: DIABETES MELLITUS
     Route: 048
     Dates: start: 20080401
  3. PANTOPRAZOLE [Concomitant]
     Indication: GASTRIC DISORDER
     Route: 048
     Dates: start: 20050101
  4. DEXEDRINE [Concomitant]
     Indication: DRUG USE FOR UNKNOWN INDICATION
     Route: 048
     Dates: start: 20050101
  5. OXYCODONE HCL [Concomitant]
     Indication: PAIN
     Dosage: 5/325MG 4-5 TABLETS AS NEEDED
     Route: 048
     Dates: start: 20000101
  6. TEMAZEPAM [Concomitant]
     Indication: PAIN
     Dosage: AT BEDTIME
     Route: 048
     Dates: start: 19980101

REACTIONS (1)
  - FATIGUE [None]
